FAERS Safety Report 7434219-2 (Version None)
Quarter: 2011Q2

REPORT INFORMATION
  Report Type: 
  Country: None (occurrence: None)
  Receive Date: 20110425
  Receipt Date: 20110419
  Transmission Date: 20111010
  Serious: No
  Sender: FDA-Public Use
  Company Number: US-PFIZER INC-2011086219

PATIENT
  Sex: Female

DRUGS (2)
  1. TYLENOL W/ CODEINE [Suspect]
     Indication: PAIN
     Dosage: UNK
  2. LYRICA [Suspect]
     Indication: MULTIPLE SCLEROSIS
     Dosage: UNK

REACTIONS (2)
  - CONSTIPATION [None]
  - HEADACHE [None]
